FAERS Safety Report 10177208 (Version 1)
Quarter: 2014Q2

REPORT INFORMATION
  Report Type: Other
  Country: GB (occurrence: GB)
  Receive Date: 20140516
  Receipt Date: 20140516
  Transmission Date: 20141212
  Serious: Yes (Hospitalization)
  Sender: FDA-Public Use
  Company Number: GB-PERRIGO-14GB005044

PATIENT
  Age: 60 Year
  Sex: Female

DRUGS (2)
  1. IBUPROFEN 16028/0027 200 MG [Suspect]
     Indication: PAIN
     Dosage: UNK
     Route: 048
     Dates: start: 20140421, end: 20140501
  2. SERTRALINE [Suspect]
     Indication: DEPRESSION
     Dosage: 50 MG, UNK
     Route: 048
     Dates: start: 1992

REACTIONS (1)
  - Haemorrhage [Recovering/Resolving]
